FAERS Safety Report 5289578-6 (Version None)
Quarter: 2007Q2

REPORT INFORMATION
  Report Type: 
  Country: None (occurrence: None)
  Receive Date: 20070406
  Receipt Date: 20070329
  Transmission Date: 20071010
  Serious: Yes (Other)
  Sender: FDA-Public Use
  Company Number: JP-ROCHE-490388

PATIENT
  Age: 8 Year
  Sex: Male
  Weight: 24 kg

DRUGS (5)
  1. TAMIFLU [Suspect]
     Route: 048
     Dates: start: 20070323, end: 20070323
  2. TAMIFLU [Suspect]
     Route: 048
     Dates: start: 20070324, end: 20070327
  3. TAMIFLU [Suspect]
     Route: 048
     Dates: start: 20070328, end: 20070328
  4. SOLDEM [Concomitant]
     Route: 042
     Dates: start: 20070323
  5. NOVO-HEPARIN [Concomitant]
     Route: 042
     Dates: start: 20070326, end: 20070328

REACTIONS (3)
  - ATELECTASIS [None]
  - PLEURAL EFFUSION [None]
  - PNEUMONIA [None]
